FAERS Safety Report 8337228-4 (Version None)
Quarter: 2012Q2

REPORT INFORMATION
  Report Type: 
  Country: None (occurrence: None)
  Receive Date: 20120504
  Receipt Date: 20120424
  Transmission Date: 20120825
  Serious: Yes (Hospitalization)
  Sender: FDA-Public Use
  Company Number: CN-NOVOPROD-350442

PATIENT
  Age: 59 Year
  Sex: Female
  Weight: 49 kg

DRUGS (3)
  1. NOVOLIN N [Suspect]
     Dosage: 8 IU IN THE MORNING
     Route: 065
     Dates: end: 20111201
  2. REPAGLINIDE [Concomitant]
     Indication: TYPE 2 DIABETES MELLITUS
     Dosage: 1 MG, TID
  3. NOVOLIN N [Suspect]
     Indication: TYPE 2 DIABETES MELLITUS
     Dosage: 8 IU IN THE MORNING AND 8 IU IN THE EVENING.
     Route: 065
     Dates: start: 20111201

REACTIONS (4)
  - ABNORMAL LOSS OF WEIGHT [None]
  - HYPOGLYCAEMIA [None]
  - ABDOMINAL PAIN [None]
  - MUSCULAR WEAKNESS [None]
